FAERS Safety Report 20630643 (Version 1)
Quarter: 2022Q1

REPORT INFORMATION
  Report Type: Spontaneous
  Country: US (occurrence: US)
  Receive Date: 20220324
  Receipt Date: 20220324
  Transmission Date: 20220423
  Serious: No
  Sender: FDA-Public Use
  Company Number: US-JNJFOC-20200425376

PATIENT
  Age: 63 Year
  Sex: Male

DRUGS (2)
  1. DARZALEX [Suspect]
     Active Substance: DARATUMUMAB
     Indication: Plasma cell myeloma
     Dosage: DOSE: 1200 AND 300 MG, DAY 1, 15, EVERY 28 DAYS, 100 MG VIAL
     Route: 042
     Dates: start: 20200205, end: 20200416
  2. DARZALEX [Suspect]
     Active Substance: DARATUMUMAB
     Dosage: DAY 1, 15, EVERY 28 DAYS, 400 MG VIAL
     Route: 042

REACTIONS (1)
  - Product dose omission issue [Unknown]

NARRATIVE: CASE EVENT DATE: 20200416
